FAERS Safety Report 16976347 (Version 6)
Quarter: 2020Q1

REPORT INFORMATION
  Report Type: Report from Study
  Country: US (occurrence: US)
  Receive Date: 20191030
  Receipt Date: 20200303
  Transmission Date: 20200409
  Serious: Yes (Hospitalization, Other)
  Sender: FDA-Public Use
  Company Number: US-GLAXOSMITHKLINE-2019-TSO02245-US

PATIENT
  Age: 66 Year
  Sex: Female

DRUGS (7)
  1. NIRAPARIB [Suspect]
     Active Substance: NIRAPARIB
     Dosage: 200 MG, QD
     Route: 048
     Dates: start: 20191021, end: 201910
  2. NIRAPARIB [Suspect]
     Active Substance: NIRAPARIB
     Dosage: 100 MG
     Route: 048
  3. NIRAPARIB [Suspect]
     Active Substance: NIRAPARIB
     Indication: OVARIAN CANCER
     Dosage: 200 MG, QD, PM WITHOUT FOOD
     Route: 048
     Dates: start: 20190611
  4. NIRAPARIB [Suspect]
     Active Substance: NIRAPARIB
     Dosage: 200MG FOR 2 DAYS ALTERNATING WITH 100MG ONE DAY
     Route: 048
     Dates: start: 20190722
  5. ELIQUIS [Concomitant]
     Active Substance: APIXABAN
     Indication: PRODUCT USED FOR UNKNOWN INDICATION
     Dosage: UNK
  6. NIRAPARIB [Suspect]
     Active Substance: NIRAPARIB
     Dosage: 300 MG, QD WITHOUT FOOD
     Route: 048
     Dates: start: 20190926, end: 20191020
  7. NIRAPARIB [Suspect]
     Active Substance: NIRAPARIB
     Dosage: 100 MG, QD
     Route: 048
     Dates: start: 20191225

REACTIONS (30)
  - Dysphagia [Not Recovered/Not Resolved]
  - Malaise [Unknown]
  - Stomatitis [Recovered/Resolved]
  - Carbohydrate antigen 125 increased [Not Recovered/Not Resolved]
  - Product dose omission [Unknown]
  - Oral mucosal blistering [Unknown]
  - Dizziness [Not Recovered/Not Resolved]
  - Nausea [Not Recovered/Not Resolved]
  - Retching [Unknown]
  - Decreased appetite [Recovering/Resolving]
  - Dry mouth [Recovered/Resolved]
  - Fatigue [Recovered/Resolved]
  - Balance disorder [Not Recovered/Not Resolved]
  - Feeding disorder [Recovered/Resolved]
  - Tearfulness [Unknown]
  - Tumour marker increased [Unknown]
  - Oropharyngeal pain [Recovered/Resolved]
  - Dyspepsia [Recovered/Resolved]
  - Dehydration [Recovered/Resolved]
  - Taste disorder [Not Recovered/Not Resolved]
  - Constipation [Not Recovered/Not Resolved]
  - Thrombosis [Unknown]
  - Anxiety [Unknown]
  - Asthenia [Recovered/Resolved]
  - Pharyngeal swelling [Unknown]
  - Mouth haemorrhage [Recovered/Resolved]
  - Blood pressure abnormal [Unknown]
  - Weight decreased [Recovered/Resolved]
  - Inappropriate schedule of product administration [Unknown]
  - Drug ineffective [Unknown]

NARRATIVE: CASE EVENT DATE: 201906
